FAERS Safety Report 10244876 (Version 3)
Quarter: 2014Q3

REPORT INFORMATION
  Report Type: Spontaneous
  Country: DK (occurrence: CN)
  Receive Date: 20140618
  Receipt Date: 20140707
  Transmission Date: 20150326
  Serious: Yes (Hospitalization)
  Sender: FDA-Public Use
  Company Number: CN-FRI-1000068209

PATIENT
  Age: 70 Year
  Sex: Female

DRUGS (1)
  1. LEXAPRO [Suspect]
     Active Substance: ESCITALOPRAM OXALATE
     Indication: DEPRESSION
     Dosage: 10 MG
     Route: 048
     Dates: start: 201308

REACTIONS (6)
  - Fall [Unknown]
  - Blood sodium decreased [Not Recovered/Not Resolved]
  - Drug ineffective [Not Recovered/Not Resolved]
  - Urine output decreased [Not Recovered/Not Resolved]
  - Hyperhidrosis [Not Recovered/Not Resolved]
  - Fracture [Not Recovered/Not Resolved]

NARRATIVE: CASE EVENT DATE: 201401
